FAERS Safety Report 15576863 (Version 3)
Quarter: 2018Q4

REPORT INFORMATION
  Report Type: Spontaneous
  Country: US (occurrence: US)
  Receive Date: 20181101
  Receipt Date: 20181114
  Transmission Date: 20190205
  Serious: Yes (Hospitalization)
  Sender: FDA-Public Use
  Company Number: US-ACTELION-A-NJ2018-181121

PATIENT
  Age: 51 Year
  Sex: Female
  Weight: 70.3 kg

DRUGS (2)
  1. SILDENAFIL. [Concomitant]
     Active Substance: SILDENAFIL
     Dosage: 10 MG, TID
     Dates: start: 20181027
  2. VELETRI [Suspect]
     Active Substance: EPOPROSTENOL
     Indication: PULMONARY ARTERIAL HYPERTENSION
     Dosage: 20 NG/KG, PER MIN
     Route: 042

REACTIONS (7)
  - Catheter site erythema [Not Recovered/Not Resolved]
  - Pyrexia [Not Recovered/Not Resolved]
  - Vascular device infection [Not Recovered/Not Resolved]
  - Pseudomonas test positive [Not Recovered/Not Resolved]
  - Catheter site pain [Not Recovered/Not Resolved]
  - Device related sepsis [Unknown]
  - Catheter management [Not Recovered/Not Resolved]

NARRATIVE: CASE EVENT DATE: 2014
